FAERS Safety Report 9918474 (Version 1)
Quarter: 2014Q1

REPORT INFORMATION
  Report Type: Spontaneous
  Country: US (occurrence: US)
  Receive Date: 20140224
  Receipt Date: 20140224
  Transmission Date: 20141002
  Serious: No
  Sender: FDA-Public Use
  Company Number: US-BIOGENIDEC-2014BI013276

PATIENT
  Age: 40 Year
  Sex: Female
  Weight: 70 kg

DRUGS (11)
  1. TECFIDERA [Suspect]
     Indication: PRODUCT USED FOR UNKNOWN INDICATION
     Route: 048
  2. REMERON [Concomitant]
  3. LYRICA [Concomitant]
  4. BACLOFEN [Concomitant]
  5. TOPROL XL [Concomitant]
  6. NEXIUM [Concomitant]
  7. LEXAPRO [Concomitant]
  8. FLOMAX [Concomitant]
  9. ASPIRIN [Concomitant]
  10. ZANTAC [Concomitant]
  11. B COMPLEX [Concomitant]

REACTIONS (7)
  - Asthenia [Unknown]
  - Pain [Unknown]
  - Dizziness [Unknown]
  - Pain in extremity [Unknown]
  - Nausea [Unknown]
  - Abdominal pain upper [Unknown]
  - Pruritus [Unknown]
